FAERS Safety Report 9811582 (Version 3)
Quarter: 2015Q2

REPORT INFORMATION
  Report Type: Spontaneous
  Country: US (occurrence: US)
  Receive Date: 20140110
  Receipt Date: 20150526
  Transmission Date: 20150821
  Serious: Yes (Other)
  Sender: FDA-Public Use
  Company Number: US-SANOFI-AVENTIS-2013SA059233

PATIENT
  Age: 59 Year

DRUGS (1)
  1. PLAVIX [Suspect]
     Active Substance: CLOPIDOGREL BISULFATE
     Indication: CEREBROVASCULAR ACCIDENT
     Route: 048
     Dates: start: 20070201, end: 20110830

REACTIONS (9)
  - Gastrointestinal haemorrhage [Unknown]
  - Anaemia [Unknown]
  - Ulcer haemorrhage [Unknown]
  - Liver injury [Unknown]
  - Hepatic cirrhosis [Unknown]
  - Multiple injuries [Unknown]
  - Colon injury [Unknown]
  - Rectal haemorrhage [Unknown]
  - Oesophageal varices haemorrhage [Unknown]

NARRATIVE: CASE EVENT DATE: 20110801
